FAERS Safety Report 6219350-1 (Version None)
Quarter: 2009Q2

REPORT INFORMATION
  Report Type: 
  Country: None (occurrence: None)
  Receive Date: 20090605
  Receipt Date: 20090605
  Transmission Date: 20091009
  Serious: Yes (Death)
  Sender: FDA-Public Use
  Company Number: None

PATIENT
  Age: 15 Year
  Sex: Female
  Weight: 45.3597 kg

DRUGS (3)
  1. EFFEXOR XR [Suspect]
     Indication: DEPRESSION
     Dosage: 150 MG 1X PER DAY PO
     Route: 048
     Dates: start: 20090427, end: 20090512
  2. CLONAZEPAM [Concomitant]
  3. LAMOTRIGINE [Concomitant]

REACTIONS (1)
  - COMPLETED SUICIDE [None]
